FAERS Safety Report 19686109 (Version 1)
Quarter: 2021Q3

REPORT INFORMATION
  Report Type: Spontaneous
  Country: NL (occurrence: FR)
  Receive Date: 20210811
  Receipt Date: 20210811
  Transmission Date: 20211014
  Serious: Yes (Hospitalization)
  Sender: FDA-Public Use
  Company Number: FR-FRESENIUS KABI-FK202108204

PATIENT
  Age: 61 Year
  Sex: Male
  Weight: 44 kg

DRUGS (23)
  1. ISONIAZID/PYRAZINAMIDE/RIFAMPICIN [Suspect]
     Active Substance: ISONIAZID\PYRAZINAMIDE\RIFAMPIN
     Dosage: RIFATER COATED TABLET
     Route: 048
     Dates: start: 20210630, end: 20210715
  2. PYRIDOXINE HYDROCHLORIDE. [Concomitant]
     Active Substance: PYRIDOXINE HYDROCHLORIDE
     Indication: PRODUCT USED FOR UNKNOWN INDICATION
     Route: 065
  3. PARACETAMOL [Concomitant]
     Active Substance: ACETAMINOPHEN
     Indication: PRODUCT USED FOR UNKNOWN INDICATION
     Route: 065
  4. ISONIAZID/PYRAZINAMIDE/RIFAMPICIN [Suspect]
     Active Substance: ISONIAZID\PYRAZINAMIDE\RIFAMPIN
     Indication: TUBERCULOSIS
     Dosage: RIFATER COATED TABLET
     Route: 048
     Dates: start: 20210420, end: 20210515
  5. SALBUTAMOL [Concomitant]
     Active Substance: ALBUTEROL
     Indication: PRODUCT USED FOR UNKNOWN INDICATION
     Route: 065
  6. OXYCODONE HYDROCHLORIDE. [Concomitant]
     Active Substance: OXYCODONE HYDROCHLORIDE
     Indication: PRODUCT USED FOR UNKNOWN INDICATION
     Route: 065
  7. OXYCODONE HYDROCHLORIDE. [Concomitant]
     Active Substance: OXYCODONE HYDROCHLORIDE
     Indication: PRODUCT USED FOR UNKNOWN INDICATION
     Route: 065
  8. PEMBROLIZUMAB. [Suspect]
     Active Substance: PEMBROLIZUMAB
     Indication: LUNG ADENOCARCINOMA STAGE IV
     Dosage: PEMBROLIZUMAB MK?3475 50 MG/ POWDER FOR SOLUTION FOR INFUSION ?CURE 3
     Route: 041
     Dates: start: 20210625
  9. PEMETREXED DISODIUM HEPTAHYDRATE [Suspect]
     Active Substance: PEMETREXED
     Indication: LUNG ADENOCARCINOMA STAGE IV
     Dosage: ALIMTA 500 MG, POWDER FOR SOLUTION TO DILUTE FOR INFUSION?CURE 1
     Route: 041
     Dates: start: 20210409
  10. SODIUM BICARBONATE/POTASSIUM CHLORIDE/SODIUM CHLORIDE/MACROGOL 3350 [Concomitant]
     Active Substance: POLYETHYLENE GLYCOL 3350\POTASSIUM CHLORIDE\SODIUM BICARBONATE\SODIUM CHLORIDE
     Indication: PRODUCT USED FOR UNKNOWN INDICATION
     Route: 065
  11. PEMETREXED DISODIUM HEPTAHYDRATE [Suspect]
     Active Substance: PEMETREXED
     Dosage: ALIMTA 500 MG, POWDER FOR SOLUTION TO DILUTE FOR INFUSION?CURE 2
     Route: 041
     Dates: start: 20210430
  12. COVID?19 VACCINE MRNA (MRNA 1273) [Concomitant]
     Indication: PRODUCT USED FOR UNKNOWN INDICATION
     Dosage: VACCINE MRNA COVID?19 MODERNA 0.20 MG /ML INJECTABLE SUSPENSION
     Route: 065
  13. METFORMIN [Concomitant]
     Active Substance: METFORMIN HYDROCHLORIDE
     Indication: PRODUCT USED FOR UNKNOWN INDICATION
     Route: 065
  14. ETHAMBUTOL DIHYDROCHLORIDE [Concomitant]
     Active Substance: ETHAMBUTOL HYDROCHLORIDE
     Indication: TUBERCULOSIS
     Dosage: DEXAMBUTOL 500 MG/ COATED TABLET
     Route: 048
     Dates: start: 20210420, end: 20210515
  15. CARBOPLATIN (MANUFACTURER UNKNOWN) [Suspect]
     Active Substance: CARBOPLATIN
     Dosage: CURE 1
     Route: 041
     Dates: start: 20210409
  16. CARBOPLATIN (MANUFACTURER UNKNOWN) [Suspect]
     Active Substance: CARBOPLATIN
     Dosage: CURE 3
     Route: 041
     Dates: start: 20210625
  17. PEMETREXED DISODIUM HEPTAHYDRATE [Suspect]
     Active Substance: PEMETREXED
     Dosage: ALIMTA 500 MG, POWDER FOR SOLUTION TO DILUTE FOR INFUSION?CURE 3
     Route: 041
     Dates: start: 20210625
  18. PEMBROLIZUMAB. [Suspect]
     Active Substance: PEMBROLIZUMAB
     Dosage: PEMBROLIZUMAB MK?3475 50 MG/ POWDER FOR SOLUTION FOR INFUSION ?CURE 1
     Route: 041
     Dates: start: 20210409
  19. ATORVASTATIN CALCIUM. [Concomitant]
     Active Substance: ATORVASTATIN CALCIUM
     Indication: PRODUCT USED FOR UNKNOWN INDICATION
     Route: 065
  20. CARBOPLATIN (MANUFACTURER UNKNOWN) [Suspect]
     Active Substance: CARBOPLATIN
     Indication: LUNG ADENOCARCINOMA STAGE IV
     Dosage: CURE 2
     Route: 041
     Dates: start: 20210430
  21. PEMBROLIZUMAB. [Suspect]
     Active Substance: PEMBROLIZUMAB
     Dosage: PEMBROLIZUMAB MK?3475 50 MG/ POWDER FOR SOLUTION FOR INFUSION ?CURE 2
     Route: 041
     Dates: start: 20210430
  22. TIMOLOL MALEATE. [Concomitant]
     Active Substance: TIMOLOL MALEATE
     Indication: PRODUCT USED FOR UNKNOWN INDICATION
     Route: 065
  23. ONDANSETRON [Concomitant]
     Active Substance: ONDANSETRON
     Indication: PRODUCT USED FOR UNKNOWN INDICATION
     Route: 065

REACTIONS (1)
  - Mixed liver injury [Recovering/Resolving]

NARRATIVE: CASE EVENT DATE: 20210514
